FAERS Safety Report 4312273-4 (Version None)
Quarter: 2004Q1

REPORT INFORMATION
  Report Type: 
  Country: None (occurrence: None)
  Receive Date: 20040303
  Receipt Date: 20040225
  Transmission Date: 20041129
  Serious: Yes (Disabling)
  Sender: FDA-Public Use
  Company Number: STA-AE-04-MTX-078

PATIENT

DRUGS (1)
  1. METHOTREXATE [Suspect]
     Indication: RHEUMATOID ARTHRITIS
     Dosage: 9 TABLET 1X PER 1 WK, ORAL
     Route: 048
     Dates: end: 20021115

REACTIONS (5)
  - CONDYLOMA ACUMINATUM [None]
  - CONGENITAL ANOMALY [None]
  - CONGENITAL VESICOURETERIC REFLUX [None]
  - DRUG EXPOSURE DURING PREGNANCY [None]
  - KIDNEY MALFORMATION [None]
